FAERS Safety Report 5324240-2 (Version None)
Quarter: 2007Q2

REPORT INFORMATION
  Report Type: 
  Country: None (occurrence: None)
  Receive Date: 20070508
  Receipt Date: 20070423
  Transmission Date: 20071010
  Serious: Yes (Death, Hospitalization, Disabling)
  Sender: FDA-Public Use
  Company Number: 2007000555

PATIENT
  Sex: Female

DRUGS (2)
  1. ERLOTINIB (TABLET)  (ERLOTINIB HCL) [Suspect]
     Indication: PANCREATIC CARCINOMA
     Dosage: ORAL
     Route: 048
  2. BEVACIZUMAB (INJECTION FOR INFUSION) [Suspect]
     Indication: PANCREATIC CARCINOMA
     Dosage: INTRAVENOUS
     Route: 042

REACTIONS (3)
  - METASTASES TO LUNG [None]
  - PLEURAL EFFUSION [None]
  - PULMONARY EMBOLISM [None]
